FAERS Safety Report 8403127-2 (Version None)
Quarter: 2012Q2

REPORT INFORMATION
  Report Type: 
  Country: None (occurrence: None)
  Receive Date: 20120601
  Receipt Date: 20120522
  Transmission Date: 20120825
  Serious: Yes (Death, Other)
  Sender: FDA-Public Use
  Company Number: DE-JNJFOC-20120519308

PATIENT

DRUGS (8)
  1. CYCLOPHOSPHAMIDE [Suspect]
     Indication: HODGKIN'S DISEASE
     Route: 065
  2. ETOPOSIDE [Suspect]
     Indication: HODGKIN'S DISEASE
     Route: 065
  3. VINCRISTINE [Suspect]
     Indication: HODGKIN'S DISEASE
     Route: 065
  4. PROCARBAZINE HYDROCHLORIDE [Suspect]
     Indication: HODGKIN'S DISEASE
     Route: 065
  5. PREDNISONE TAB [Suspect]
     Indication: HODGKIN'S DISEASE
     Route: 065
  6. DOXORUBICIN HCL [Suspect]
     Indication: HODGKIN'S DISEASE
     Route: 042
  7. RADIOTHERAPY [Concomitant]
     Indication: HODGKIN'S DISEASE
     Route: 065
  8. BLEOMYCIN SULFATE [Suspect]
     Indication: HODGKIN'S DISEASE
     Route: 065

REACTIONS (24)
  - DEATH [None]
  - MUCOSAL INFLAMMATION [None]
  - GASTROINTESTINAL DISORDER [None]
  - ACUTE MYELOID LEUKAEMIA [None]
  - ANAEMIA [None]
  - CARDIOVASCULAR DISORDER [None]
  - VOMITING [None]
  - HODGKIN'S DISEASE [None]
  - NEOPLASM [None]
  - TOXICITY TO VARIOUS AGENTS [None]
  - THROMBOCYTOPENIA [None]
  - NON-HODGKIN'S LYMPHOMA [None]
  - COMPLETED SUICIDE [None]
  - NERVOUS SYSTEM DISORDER [None]
  - INFECTION [None]
  - NAUSEA [None]
  - MYELODYSPLASTIC SYNDROME [None]
  - ACCIDENT [None]
  - LEUKOPENIA [None]
  - RESPIRATORY DISORDER [None]
  - HAEMATOTOXICITY [None]
  - ALOPECIA [None]
  - PAIN [None]
  - PYREXIA [None]
